FAERS Safety Report 9595575 (Version 1)
Quarter: 2013Q4

REPORT INFORMATION
  Report Type: Spontaneous
  Country: US (occurrence: US)
  Receive Date: 20131004
  Receipt Date: 20131004
  Transmission Date: 20140711
  Serious: No
  Sender: FDA-Public Use
  Company Number: US-PURDUE-USA-2012-0092764

PATIENT
  Age: 54 Year
  Sex: Female

DRUGS (2)
  1. BUTRANS [Suspect]
     Indication: ARTHRITIS
     Dosage: 5 MCG, UNK
     Route: 062
     Dates: start: 201201, end: 201201
  2. BUTRANS [Suspect]
     Indication: FIBROMYALGIA
     Dosage: 10 MCG, UNK
     Route: 062
     Dates: start: 201201

REACTIONS (3)
  - Application site vesicles [Recovered/Resolved]
  - Application site rash [Recovered/Resolved]
  - Application site pruritus [Recovered/Resolved]
